FAERS Safety Report 8484835-4 (Version None)
Quarter: 2012Q3

REPORT INFORMATION
  Report Type: 
  Country: None (occurrence: None)
  Receive Date: 20120703
  Receipt Date: 20120620
  Transmission Date: 20120928
  Serious: Yes (Hospitalization)
  Sender: FDA-Public Use
  Company Number: GR-TEVA-345215ISR

PATIENT
  Age: 81 Year
  Sex: Male

DRUGS (5)
  1. STRONTIUM RANELATE [Suspect]
  2. ACETYLACETIC ACID [Suspect]
  3. CALCIUM ACETATE [Suspect]
  4. VALSARTAN  AND HYDROCHLOROTHIAZIDE [Suspect]
  5. QUETIAPINE [Suspect]

REACTIONS (2)
  - SHOCK HAEMORRHAGIC [None]
  - BLOOD CREATINE PHOSPHOKINASE INCREASED [None]
